FAERS Safety Report 23520653 (Version 3)
Quarter: 2024Q3

REPORT INFORMATION
  Report Type: Report from Study
  Country: US (occurrence: US)
  Receive Date: 20240214
  Receipt Date: 20240926
  Transmission Date: 20241016
  Serious: No
  Sender: GLAXOSMITHKLINE
  Company Number: US-GLAXOSMITHKLINE-US2024AMR018489

PATIENT
  Sex: Female

DRUGS (1)
  1. NIRAPARIB [Suspect]
     Active Substance: NIRAPARIB
     Indication: Ovarian cancer
     Dosage: 200 MG, QD
     Dates: start: 20240130

REACTIONS (7)
  - Nausea [Recovering/Resolving]
  - Asthenia [Recovered/Resolved]
  - Dysstasia [Recovered/Resolved]
  - Platelet count decreased [Not Recovered/Not Resolved]
  - Tremor [Recovered/Resolved]
  - Nasopharyngitis [Recovering/Resolving]
  - Hypoaesthesia [Recovering/Resolving]
